FAERS Safety Report 8129355-1 (Version None)
Quarter: 2012Q1

REPORT INFORMATION
  Report Type: 
  Country: None (occurrence: None)
  Receive Date: 20120210
  Receipt Date: 20120203
  Transmission Date: 20120608
  Serious: Yes (Hospitalization, Other)
  Sender: FDA-Public Use
  Company Number: US-MERCK-1106USA03369

PATIENT
  Age: 62 Year
  Sex: Female

DRUGS (11)
  1. FOSAMAX [Suspect]
     Indication: OSTEOPOROSIS
     Route: 048
     Dates: start: 20040607, end: 20041201
  2. FOSAMAX [Suspect]
     Route: 048
     Dates: start: 20050101, end: 20080101
  3. FOSAMAX [Suspect]
     Indication: OSTEOPENIA
     Route: 048
     Dates: start: 20040607, end: 20041201
  4. FOSAMAX [Suspect]
     Route: 048
     Dates: start: 19980901, end: 20031201
  5. VITAMINS (UNSPECIFIED) [Concomitant]
     Route: 065
     Dates: start: 20000101
  6. ALENDRONATE SODIUM [Suspect]
     Indication: OSTEOPOROSIS
     Route: 048
     Dates: start: 20080702, end: 20091201
  7. FOSAMAX [Suspect]
     Route: 048
     Dates: start: 19980901, end: 20031201
  8. ALENDRONATE SODIUM [Suspect]
     Indication: OSTEOPENIA
     Route: 048
     Dates: start: 20080702, end: 20091201
  9. VITAMIN D (UNSPECIFIED) [Concomitant]
     Route: 065
     Dates: start: 19970101
  10. CALCIUM (UNSPECIFIED) [Concomitant]
     Route: 065
     Dates: start: 19950901
  11. FOSAMAX [Suspect]
     Route: 048
     Dates: start: 20050101, end: 20080101

REACTIONS (37)
  - RESTLESS LEGS SYNDROME [None]
  - CATARACT [None]
  - ANAEMIA POSTOPERATIVE [None]
  - ANXIETY [None]
  - DIVERTICULUM [None]
  - ARTHRALGIA [None]
  - NEURITIS [None]
  - JOINT DISLOCATION [None]
  - URINARY TRACT INFECTION [None]
  - PAIN IN EXTREMITY [None]
  - DRUG INEFFECTIVE [None]
  - FRACTURE NONUNION [None]
  - FOOT FRACTURE [None]
  - SENSITIVITY OF TEETH [None]
  - SPINAL DISORDER [None]
  - FALL [None]
  - HERPES ZOSTER [None]
  - ABDOMINAL PAIN UPPER [None]
  - RADICULAR SYNDROME [None]
  - BREAST DISORDER [None]
  - FEMUR FRACTURE [None]
  - ANAEMIA [None]
  - HYPERLIPIDAEMIA [None]
  - UPPER RESPIRATORY TRACT INFECTION [None]
  - RIB FRACTURE [None]
  - NAUSEA [None]
  - DEPRESSION [None]
  - DEVICE FAILURE [None]
  - ARTHROPATHY [None]
  - LUMBAR SPINAL STENOSIS [None]
  - INTERVERTEBRAL DISC DISORDER [None]
  - INSOMNIA [None]
  - OSTEOARTHRITIS [None]
  - BACK PAIN [None]
  - BILIARY DYSKINESIA [None]
  - HEADACHE [None]
  - LOW TURNOVER OSTEOPATHY [None]
